FAERS Safety Report 12652010 (Version 5)
Quarter: 2017Q1

REPORT INFORMATION
  Report Type: Spontaneous
  Country: US (occurrence: US)
  Receive Date: 20160815
  Receipt Date: 20170215
  Transmission Date: 20170428
  Serious: No
  Sender: FDA-Public Use
  Company Number: US-ACTELION-A-US2016-140697

PATIENT
  Age: 81 Year
  Sex: Female
  Weight: 68.27 kg

DRUGS (5)
  1. COUMADIN [Concomitant]
     Active Substance: WARFARIN SODIUM
  2. NIFEDICAL XL [Concomitant]
     Active Substance: NIFEDIPINE
  3. TRACLEER [Suspect]
     Active Substance: BOSENTAN
     Indication: PULMONARY HYPERTENSION
     Dosage: 125 MG, BID
     Route: 048
     Dates: start: 20090316
  4. REMODULIN [Concomitant]
     Active Substance: TREPROSTINIL
  5. ADCIRCA [Concomitant]
     Active Substance: TADALAFIL

REACTIONS (7)
  - Catheter site pain [Unknown]
  - Weight decreased [Unknown]
  - Catheter site haemorrhage [Unknown]
  - Catheter site swelling [Unknown]
  - Catheter site vesicles [Unknown]
  - Catheter placement [Unknown]
  - Catheter site erythema [Unknown]
